FAERS Safety Report 7003736-1 (Version None)
Quarter: 2010Q3

REPORT INFORMATION
  Report Type: 
  Country: None (occurrence: None)
  Receive Date: 20100920
  Receipt Date: 20090924
  Transmission Date: 20110219
  Serious: No
  Sender: FDA-Public Use
  Company Number: US-WYE-H10663109

PATIENT
  Age: 80 Year
  Sex: Female
  Weight: 74.91 kg

DRUGS (5)
  1. PROTONIX [Suspect]
     Indication: GASTROOESOPHAGEAL REFLUX DISEASE
     Route: 048
     Dates: start: 20080801
  2. ZOCOR [Concomitant]
  3. PAXIL [Concomitant]
  4. ARICEPT [Concomitant]
  5. NAMENDA [Concomitant]

REACTIONS (1)
  - DRUG SCREEN POSITIVE [None]
